FAERS Safety Report 5105792-4 (Version None)
Quarter: 2006Q3

REPORT INFORMATION
  Report Type: 
  Country: None (occurrence: None)
  Receive Date: 20060915
  Receipt Date: 20060906
  Transmission Date: 20061208
  Serious: Yes (Hospitalization)
  Sender: FDA-Public Use
  Company Number: JP-NOVOPROD-256864

PATIENT
  Age: 58 Year
  Sex: Male

DRUGS (1)
  1. NOVOLIN N [Suspect]
     Indication: DIABETES MELLITUS
     Dosage: 600 IU, UNK
     Route: 058
     Dates: start: 20060904, end: 20060904

REACTIONS (2)
  - HYPOGLYCAEMIA [None]
  - SUICIDE ATTEMPT [None]
